FAERS Safety Report 11862179 (Version 1)
Quarter: 2015Q4

REPORT INFORMATION
  Report Type: Spontaneous
  Country: US (occurrence: None)
  Receive Date: 20151222
  Receipt Date: 20151222
  Transmission Date: 20160305
  Serious: Yes (Hospitalization)
  Sender: FDA-Public Use
  Company Number: None

PATIENT
  Age: 61 Year
  Sex: Male
  Weight: 138.35 kg

DRUGS (3)
  1. LITHIUM CR [Concomitant]
     Active Substance: LITHIUM CARBONATE
  2. OLANZAPINE 7.5MG [Suspect]
     Active Substance: OLANZAPINE
     Indication: SCHIZOAFFECTIVE DISORDER
     Route: 048
     Dates: start: 20141101, end: 20151221
  3. LISINOPRIL. [Concomitant]
     Active Substance: LISINOPRIL

REACTIONS (7)
  - Acute myocardial infarction [None]
  - Hypernatraemia [None]
  - Acidosis [None]
  - Dysstasia [None]
  - Fall [None]
  - Acute kidney injury [None]
  - Rhabdomyolysis [None]

NARRATIVE: CASE EVENT DATE: 20151220
